FAERS Safety Report 5630050-9 (Version None)
Quarter: 2008Q1

REPORT INFORMATION
  Report Type: 
  Country: None (occurrence: None)
  Receive Date: 20080218
  Receipt Date: 20080211
  Transmission Date: 20080703
  Serious: Yes (Hospitalization)
  Sender: FDA-Public Use
  Company Number: PHNU2007DE04024

PATIENT
  Age: 72 Year
  Sex: Female
  Weight: 60 kg

DRUGS (2)
  1. LIORESAL [Suspect]
     Dosage: 250 MG, ONCE/SINGLE
     Route: 048
     Dates: start: 20071202, end: 20071202
  2. LIORESAL [Suspect]
     Dosage: 125 MG, QD
     Route: 048
     Dates: end: 20071202

REACTIONS (7)
  - ACCIDENTAL OVERDOSE [None]
  - APNOEA [None]
  - COMA [None]
  - CONFUSIONAL STATE [None]
  - RESPIRATORY DEPRESSION [None]
  - SOMNOLENCE [None]
  - VOMITING [None]
